FAERS Safety Report 8302905-8 (Version None)
Quarter: 2012Q2

REPORT INFORMATION
  Report Type: 
  Country: None (occurrence: None)
  Receive Date: 20120420
  Receipt Date: 20120412
  Transmission Date: 20120825
  Serious: Yes (Hospitalization, Other)
  Sender: FDA-Public Use
  Company Number: CA-AMGEN-CANSP2012015092

PATIENT
  Age: 70 Year
  Sex: Male
  Weight: 112.5 kg

DRUGS (2)
  1. ENBREL [Suspect]
     Indication: PSORIASIS
     Dosage: 50 MG, 2 TIMES/WK
     Route: 058
     Dates: start: 20100101, end: 20111107
  2. METHOTREXATE [Concomitant]

REACTIONS (2)
  - METASTASES TO LYMPH NODES [None]
  - NEUROENDOCRINE CARCINOMA OF THE SKIN [None]
